FAERS Safety Report 6695922-5 (Version None)
Quarter: 2010Q2

REPORT INFORMATION
  Report Type: 
  Country: None (occurrence: None)
  Receive Date: 20100407
  Receipt Date: 20100304
  Transmission Date: 20101027
  Serious: Yes (Hospitalization)
  Sender: FDA-Public Use
  Company Number: KV200900851

PATIENT
  Age: 52 Year
  Sex: Female
  Weight: 74.8 kg

DRUGS (4)
  1. PROPAFENONE HCL [Suspect]
     Indication: DRUG USE FOR UNKNOWN INDICATION
     Dosage: 225 MG, TID, ORAL
     Route: 048
     Dates: start: 20080512
  2. NITROPASTE (GLYCERYL TRINITRATE) [Concomitant]
  3. XANAX [Concomitant]
  4. HYDROCODONE W/APAP (HYDROCODONE, PARACETAMOL) [Concomitant]

REACTIONS (9)
  - ANGINA UNSTABLE [None]
  - ANXIETY [None]
  - ATRIAL FIBRILLATION [None]
  - BRADYCARDIA [None]
  - BUNDLE BRANCH BLOCK LEFT [None]
  - CHEST PAIN [None]
  - COUGH [None]
  - FALL [None]
  - OBSTRUCTIVE AIRWAYS DISORDER [None]
